FAERS Safety Report 10636592 (Version 2)
Quarter: 2014Q4

REPORT INFORMATION
  Report Type: Spontaneous
  Country: IN (occurrence: IN)
  Receive Date: 20141208
  Receipt Date: 20141224
  Transmission Date: 20150529
  Serious: Yes (Other)
  Sender: FDA-Public Use
  Company Number: IN-AUROBINDO-AUR-APL-2014-12753

PATIENT
  Age: 55 Year
  Sex: Female

DRUGS (6)
  1. FLUOXETINE [Suspect]
     Active Substance: FLUOXETINE\FLUOXETINE HYDROCHLORIDE
     Indication: DEPRESSIVE SYMPTOM
     Dosage: 20 MG, DAILY
     Route: 065
  2. TRIHEXYPHENIDYL [Interacting]
     Active Substance: TRIHEXYPHENIDYL
     Dosage: 4 MG, DAILY
     Route: 065
  3. HALOPERIDOL. [Suspect]
     Active Substance: HALOPERIDOL
     Dosage: 10 MG, UNK
     Route: 065
  4. HALOPERIDOL. [Suspect]
     Active Substance: HALOPERIDOL
     Indication: AGITATION
     Dosage: 2.5-5 MG, DAILY
     Route: 065
  5. TRIHEXYPHENIDYL [Interacting]
     Active Substance: TRIHEXYPHENIDYL
     Indication: PRODUCT USED FOR UNKNOWN INDICATION
     Dosage: 2 MG, DAILY
     Route: 065
  6. HALOPERIDOL. [Suspect]
     Active Substance: HALOPERIDOL
     Dosage: 5 MG, UNK
     Route: 065

REACTIONS (17)
  - Dry mouth [Unknown]
  - Anxiety [Unknown]
  - Withdrawal syndrome [Unknown]
  - Drug dependence [Unknown]
  - Speech disorder [Unknown]
  - Insomnia [Unknown]
  - Psychotic disorder [Unknown]
  - Self esteem decreased [Unknown]
  - Feeling guilty [Unknown]
  - Drug interaction [Unknown]
  - Irritability [Recovering/Resolving]
  - Suicidal ideation [Unknown]
  - Depressed mood [Unknown]
  - Oral discomfort [Unknown]
  - Crying [Unknown]
  - Anhedonia [Unknown]
  - Psychomotor hyperactivity [Recovering/Resolving]
